FAERS Safety Report 23830781 (Version 2)
Quarter: 2024Q2

REPORT INFORMATION
  Report Type: Spontaneous
  Country: US (occurrence: None)
  Receive Date: 20240508
  Receipt Date: 20240610
  Transmission Date: 20240716
  Serious: Yes (Death, Other)
  Sender: FDA-Public Use
  Company Number: 2024A106161

PATIENT
  Age: 54 Year
  Sex: Female

DRUGS (3)
  1. TRUQAP [Suspect]
     Active Substance: CAPIVASERTIB
     Indication: Breast cancer metastatic
     Route: 048
     Dates: start: 20240422
  2. FASLODEX [Suspect]
     Active Substance: FULVESTRANT
     Indication: Metastases to liver
     Route: 030
     Dates: start: 2022
  3. VERZENIO [Suspect]
     Active Substance: ABEMACICLIB
     Indication: Metastases to liver
     Dates: start: 2022

REACTIONS (16)
  - Hyperglycaemia [Fatal]
  - Metastases to liver [Unknown]
  - Metabolic acidosis [Unknown]
  - Lactic acidosis [Unknown]
  - PIK3CA-activated mutation [Unknown]
  - Diabetic ketoacidosis [Unknown]
  - Starvation ketoacidosis [Unknown]
  - Anion gap increased [Unknown]
  - Pain [Unknown]
  - Decreased appetite [Unknown]
  - Disorientation [Unknown]
  - Hypotension [Unknown]
  - Tachycardia [Unknown]
  - Hyperkalaemia [Unknown]
  - Blood creatinine increased [Unknown]
  - Insulin resistance [Unknown]

NARRATIVE: CASE EVENT DATE: 20240101
